FAERS Safety Report 7097250-5 (Version None)
Quarter: 2010Q4

REPORT INFORMATION
  Report Type: 
  Country: None (occurrence: None)
  Receive Date: 20101111
  Receipt Date: 20101104
  Transmission Date: 20110411
  Serious: Yes (Other)
  Sender: FDA-Public Use
  Company Number: CHPA2010US17204

PATIENT
  Age: 39 Year
  Sex: Female

DRUGS (3)
  1. MAALOX ADV MAXIMUM STRENGTH ANTACID/ANTIGAS (NCH) [Suspect]
     Indication: DYSPEPSIA
     Dosage: 1 TSP, TID (^EVERY OTHER DAY^)
     Route: 048
     Dates: start: 20101024, end: 20101103
  2. VALIUM [Concomitant]
     Dosage: UNK, UNK
  3. DILAUDID [Concomitant]
     Dosage: UNK
     Route: 048
     Dates: start: 20101019, end: 20101028

REACTIONS (7)
  - DEHYDRATION [None]
  - DIARRHOEA [None]
  - DRUG INTERACTION [None]
  - GASTROENTERITIS VIRAL [None]
  - PRURITUS [None]
  - URTICARIA [None]
  - VOMITING [None]
